FAERS Safety Report 7641270-6 (Version None)
Quarter: 2011Q3

REPORT INFORMATION
  Report Type: 
  Country: None (occurrence: None)
  Receive Date: 20110728
  Receipt Date: 20110720
  Transmission Date: 20111222
  Serious: Yes (Death, Hospitalization)
  Sender: FDA-Public Use
  Company Number: US-AMGEN-USASP2010007981

PATIENT
  Age: 61 Year
  Sex: Male

DRUGS (4)
  1. NPLATE [Suspect]
     Dosage: 80 A?G/KG, UNK
     Dates: end: 20110422
  2. NPLATE [Suspect]
     Indication: IDIOPATHIC THROMBOCYTOPENIC PURPURA
     Dosage: UNK
     Dates: start: 20100113
  3. IMMUNOGLOBULINS [Concomitant]
     Indication: IDIOPATHIC THROMBOCYTOPENIC PURPURA
  4. CORTICOSTEROIDS [Concomitant]
     Indication: IDIOPATHIC THROMBOCYTOPENIC PURPURA
     Dosage: UNK
     Dates: start: 20091101

REACTIONS (3)
  - HOSPITALISATION [None]
  - NASOPHARYNGITIS [None]
  - CARDIAC ARREST [None]
